FAERS Safety Report 5988413-8 (Version None)
Quarter: 2008Q4

REPORT INFORMATION
  Report Type: 
  Country: None (occurrence: None)
  Receive Date: 20081204
  Receipt Date: 20081121
  Transmission Date: 20090506
  Serious: Yes (Other)
  Sender: FDA-Public Use
  Company Number: DSA_32728_2008

PATIENT
  Sex: Male

DRUGS (4)
  1. DILTIAZEM HCL [Suspect]
     Indication: ARTERIAL OCCLUSIVE DISEASE
     Dosage: (100 MG QD ORAL)
     Route: 048
     Dates: start: 20080926, end: 20081001
  2. DILTIAZEM HCL [Suspect]
     Indication: THROMBOANGIITIS OBLITERANS
     Dosage: (100 MG QD ORAL)
     Route: 048
     Dates: start: 20080926, end: 20081001
  3. ANPLAG (ANPLAG-SARPOGRELATE  HYDROCHLORIDE) (NOT SPECIFIED) [Suspect]
     Indication: ARTERIAL OCCLUSIVE DISEASE
     Dosage: (300 MG,ORAL)
     Route: 048
     Dates: start: 20080409, end: 20081001
  4. ANPLAG (ANPLAG-SARPOGRELATE  HYDROCHLORIDE) (NOT SPECIFIED) [Suspect]
     Indication: THROMBOANGIITIS OBLITERANS
     Dosage: (300 MG,ORAL)
     Route: 048
     Dates: start: 20080409, end: 20081001

REACTIONS (6)
  - ERYTHEMA [None]
  - INFLAMMATION [None]
  - JOINT SWELLING [None]
  - NO THERAPEUTIC RESPONSE [None]
  - OEDEMA PERIPHERAL [None]
  - PAIN IN EXTREMITY [None]
